FAERS Safety Report 21035581 (Version 1)
Quarter: 2022Q3

REPORT INFORMATION
  Report Type: Spontaneous
  Country: US (occurrence: US)
  Receive Date: 20220701
  Receipt Date: 20220701
  Transmission Date: 20221026
  Serious: Yes (Other)
  Sender: FDA-Public Use
  Company Number: US-ORG100016242-2022001169

PATIENT

DRUGS (13)
  1. EXPAREL [Suspect]
     Active Substance: BUPIVACAINE
     Indication: Postoperative analgesia
     Route: 052
  2. BUPIVACAINE [Concomitant]
     Active Substance: BUPIVACAINE
     Indication: Postoperative analgesia
     Route: 052
  3. KETOROLAC [Concomitant]
     Active Substance: KETOROLAC TROMETHAMINE
     Indication: Postoperative analgesia
     Route: 052
  4. CEFAZOLIN [Concomitant]
     Active Substance: CEFAZOLIN
     Indication: Preoperative care
     Dosage: NOT PROVIDED
     Route: 042
  5. VANCOMYCIN [Concomitant]
     Active Substance: VANCOMYCIN
     Indication: Preoperative care
     Dosage: NOT PROVIDED
     Route: 042
  6. OXYCONTIN [Concomitant]
     Active Substance: OXYCODONE HYDROCHLORIDE
     Indication: Analgesic therapy
     Dosage: PREOPERATIVELY
     Route: 065
  7. CELECOXIB [Concomitant]
     Active Substance: CELECOXIB
     Indication: Analgesic therapy
     Dosage: PREOPERATIVELY
     Route: 065
  8. CELECOXIB [Concomitant]
     Active Substance: CELECOXIB
     Indication: Analgesic therapy
     Dosage: POSTOPERATIVELY
     Route: 065
  9. GABAPENTIN [Concomitant]
     Active Substance: GABAPENTIN
     Indication: Analgesic therapy
     Dosage: PREOPERATIVELY
     Route: 065
  10. GABAPENTIN [Concomitant]
     Active Substance: GABAPENTIN
     Indication: Analgesic therapy
     Dosage: POSTOPERATIVELY
     Route: 065
  11. ACETAMINOPHEN [Concomitant]
     Active Substance: ACETAMINOPHEN
     Indication: Analgesic therapy
     Dosage: PREOPERATIVELY
     Route: 065
  12. ACETAMINOPHEN [Concomitant]
     Active Substance: ACETAMINOPHEN
     Indication: Analgesic therapy
     Dosage: POSTOPERATIVELY
     Route: 065
  13. OXYCODONE [Concomitant]
     Active Substance: OXYCODONE
     Indication: Postoperative analgesia
     Dosage: 5 MG Q4-6HR AS NEEDED, POSTOPERATIVELY
     Route: 065

REACTIONS (26)
  - Stress fracture [Unknown]
  - Amyotrophic lateral sclerosis [Unknown]
  - Postoperative wound infection [Unknown]
  - Guillain-Barre syndrome [Unknown]
  - Periprosthetic fracture [Unknown]
  - Renal failure [Unknown]
  - Cardiac failure [Unknown]
  - Pneumonia [Unknown]
  - Hypoxia [Unknown]
  - Urinary retention [Unknown]
  - Cellulitis [Unknown]
  - Nerve block [Unknown]
  - Postoperative wound complication [Unknown]
  - Bursitis [Unknown]
  - Muscle strain [Unknown]
  - Arthrofibrosis [Unknown]
  - Tendon disorder [Unknown]
  - Adhesiolysis [Unknown]
  - Haematoma [Unknown]
  - Joint swelling [Unknown]
  - Hypotension [Unknown]
  - Joint dislocation [Unknown]
  - Pain [Unknown]
  - Procedural nausea [Unknown]
  - Procedural vomiting [Unknown]
  - Pyrexia [Unknown]
